FAERS Safety Report 8546241 (Version 2)
Quarter: 2012Q4

REPORT INFORMATION
  Report Type: Report from Study
  Country: JP (occurrence: JP)
  Receive Date: 20120504
  Receipt Date: 20120917
  Transmission Date: 20130627
  Serious: Yes (Life-Threatening, Hospitalization)
  Sender: FDA-Public Use
  Company Number: JP-PFIZER INC-2011127490

PATIENT
  Age: 76 Year
  Sex: Male
  Weight: 71 kg

DRUGS (28)
  1. CAMPTO [Suspect]
     Indication: COLORECTAL CANCER
     Dosage: 300 mg, 1x/day
     Route: 041
     Dates: start: 20110422, end: 20110422
  2. CAMPTO [Suspect]
     Dosage: 300 mg, 1x/day
     Route: 041
     Dates: start: 20110506, end: 20110506
  3. MEROPENEM [Suspect]
     Indication: FEBRILE NEUTROPENIA
     Dosage: 0.5 g, 3x/day
     Route: 041
     Dates: start: 20110513, end: 20110518
  4. 5-FU [Suspect]
     Indication: COLORECTAL CANCER
     Dosage: 750 mg, 1x/day
     Route: 040
     Dates: start: 20110422, end: 20110422
  5. 5-FU [Suspect]
     Dosage: 4500 mg, once in 2 days
     Route: 041
     Dates: start: 20110422, end: 20110422
  6. 5-FU [Suspect]
     Dosage: 750 mg, 1x/day
     Route: 040
     Dates: start: 20110506, end: 20110506
  7. 5-FU [Suspect]
     Dosage: 4500 mg, once in 2 days
     Route: 041
     Dates: start: 20110506, end: 20110506
  8. WARFARIN POTASSIUM [Suspect]
     Indication: ATRIAL FIBRILLATION
     Dosage: 1 mg, 1x/day
     Route: 048
  9. CALCIUM LEVOFOLINATE [Concomitant]
     Indication: COLORECTAL CANCER
     Dosage: 380 mg/body (218.4 mg/m2)
     Route: 041
     Dates: start: 20110422, end: 20110506
  10. HANGE-SHASHIN-TO [Concomitant]
     Dosage: UNK
     Dates: start: 20110512, end: 20110601
  11. BIOFERMIN R [Concomitant]
     Dosage: UNK
     Dates: start: 20110512, end: 20110601
  12. VEEN-F [Concomitant]
     Dosage: UNK
     Dates: start: 20110513, end: 20110522
  13. NEUTROGIN [Concomitant]
     Dosage: UNK
     Dates: start: 20110513, end: 20110518
  14. METILON [Concomitant]
     Dosage: UNK
     Dates: start: 20110513, end: 20110521
  15. LOPERAMIDE [Concomitant]
     Dosage: UNK
     Dates: start: 20110514, end: 20110601
  16. VANCOMYCIN [Concomitant]
     Dosage: UNK
     Dates: start: 20110515, end: 20110521
  17. ASACOL [Concomitant]
  18. TOWAMIN [Concomitant]
  19. PRIMPERAN [Concomitant]
     Dosage: UNK
     Dates: start: 20110512, end: 20110512
  20. SHAKUYAKU-KANZO-TO [Concomitant]
     Dosage: UNK
     Dates: start: 20110512
  21. DEPAS [Concomitant]
     Dosage: UNK
     Dates: start: 20110514
  22. THREENOFEN [Concomitant]
     Dosage: UNK
     Dates: start: 20110516, end: 20110517
  23. FUNGUARD [Concomitant]
     Dosage: UNK
     Dates: start: 20110518, end: 20110521
  24. BFLUID [Concomitant]
     Dosage: UNK
     Dates: start: 20110512, end: 20110524
  25. KAYTWO [Concomitant]
     Dosage: UNK
     Dates: start: 20110522, end: 20110522
  26. PLASMA PROTEIN FRACTION (HUMAN) [Concomitant]
     Dosage: UNK
     Dates: start: 20110522, end: 20110522
  27. ALBUMIN HUMAN [Concomitant]
     Dosage: UNK
     Dates: start: 20110522, end: 20110524
  28. HUMAN RED BLOOD CELLS [Concomitant]
     Dosage: UNK
     Dates: start: 20110522, end: 20110522

REACTIONS (13)
  - Leukopenia [Recovered/Resolved]
  - Pyrexia [Recovered/Resolved]
  - Neutropenia [Recovered/Resolved]
  - Haemoglobin decreased [Recovered/Resolved]
  - Thrombocytopenia [Recovered/Resolved]
  - Diarrhoea [Recovered/Resolved]
  - Febrile neutropenia [Recovered/Resolved]
  - Pseudomembranous colitis [Recovered/Resolved]
  - Melaena [Recovered/Resolved]
  - Shock [Recovered/Resolved]
  - Prothrombin time prolonged [Recovered/Resolved]
  - Abdominal pain [Unknown]
  - Ileus paralytic [Unknown]
